FAERS Safety Report 24815134 (Version 2)
Quarter: 2025Q1

REPORT INFORMATION
  Report Type: Report from Study
  Country: US (occurrence: US)
  Receive Date: 20250107
  Receipt Date: 20250319
  Transmission Date: 20250409
  Serious: Yes (Hospitalization)
  Sender: AMGEN
  Company Number: US-AMGEN-USASP2024257144

PATIENT
  Age: 4 Month
  Sex: Female

DRUGS (2)
  1. RAVICTI [Suspect]
     Active Substance: GLYCEROL PHENYLBUTYRATE
     Indication: Argininosuccinate lyase deficiency
     Dosage: UNK UNK, TID
     Dates: start: 20241126
  2. RAVICTI [Suspect]
     Active Substance: GLYCEROL PHENYLBUTYRATE
     Dosage: 0.5 MILLILITER, QID (1.1GM/ML; 0.5MI NG TUBE QID) (DOSE/FREQUENCY : 72/30)
     Dates: end: 20250308

REACTIONS (2)
  - Illness [Unknown]
  - Accident [Unknown]

NARRATIVE: CASE EVENT DATE: 20250301
